FAERS Safety Report 19810029 (Version 1)
Quarter: 2021Q3

REPORT INFORMATION
  Report Type: Spontaneous
  Country: US (occurrence: US)
  Receive Date: 20210909
  Receipt Date: 20210909
  Transmission Date: 20211014
  Serious: Yes (Death, Hospitalization)
  Sender: FDA-Public Use
  Company Number: US-ROCHE-2906161

PATIENT
  Sex: Female
  Weight: 96 kg

DRUGS (4)
  1. CALCIUM [Concomitant]
     Active Substance: CALCIUM
  2. BICARBONAT [Concomitant]
     Active Substance: SODIUM BICARBONATE
  3. EPINEPHRINE. [Concomitant]
     Active Substance: EPINEPHRINE
  4. ACTEMRA [Suspect]
     Active Substance: TOCILIZUMAB
     Indication: COVID-19
     Route: 042
     Dates: start: 20210828, end: 20210828

REACTIONS (11)
  - Mental status changes [Unknown]
  - Acute respiratory failure [Unknown]
  - Unevaluable event [Unknown]
  - Acidosis [Unknown]
  - Sepsis [Unknown]
  - Intentional product use issue [Unknown]
  - Acute respiratory distress syndrome [Unknown]
  - Blood glucose increased [Unknown]
  - Off label use [Unknown]
  - Death [Fatal]
  - Apnoea [Unknown]

NARRATIVE: CASE EVENT DATE: 20210829
